FAERS Safety Report 21177806 (Version 1)
Quarter: 2022Q3

REPORT INFORMATION
  Report Type: Spontaneous
  Country: US (occurrence: None)
  Receive Date: 20220805
  Receipt Date: 20220805
  Transmission Date: 20221027
  Serious: No
  Sender: FDA-Public Use
  Company Number: None

PATIENT
  Age: 64 Year
  Sex: Female
  Weight: 75.6 kg

DRUGS (4)
  1. MUPIROCIN [Suspect]
     Active Substance: MUPIROCIN
     Indication: Animal bite
     Dosage: OTHER QUANTITY : 1 TUBE;?FREQUENCY : TWICE A DAY;?
     Route: 061
     Dates: start: 20220801, end: 20220804
  2. AMOXICILLIN [Concomitant]
     Active Substance: AMOXICILLIN
  3. biotin 10,000mcg [Concomitant]
  4. vitamin D3 5000IU [Concomitant]

REACTIONS (4)
  - Application site erythema [None]
  - Application site pruritus [None]
  - Application site pain [None]
  - Application site inflammation [None]

NARRATIVE: CASE EVENT DATE: 20220801
